FAERS Safety Report 19228341 (Version 1)
Quarter: 2021Q2

REPORT INFORMATION
  Report Type: Spontaneous
  Country: US (occurrence: US)
  Receive Date: 20210506
  Receipt Date: 20210506
  Transmission Date: 20210717
  Serious: No
  Sender: FDA-Public Use
  Company Number: US-ROCHE-2729876

PATIENT
  Sex: Male

DRUGS (4)
  1. DOXAZOSIN MESILATE [Concomitant]
     Active Substance: DOXAZOSIN MESYLATE
  2. ESBRIET [Suspect]
     Active Substance: PIRFENIDONE
     Indication: IDIOPATHIC PULMONARY FIBROSIS
     Dosage: TAKE 3 CAPSULE BY MOUTH 3 TIMES A DAY AT THE SAME TIMES EACH DAY
     Route: 048
  3. FINASTERIDE. [Concomitant]
     Active Substance: FINASTERIDE
  4. OMEGA [Concomitant]

REACTIONS (1)
  - Cough [Not Recovered/Not Resolved]
